FAERS Safety Report 22607846 (Version 1)
Quarter: 2023Q2

REPORT INFORMATION
  Report Type: Report from Study
  Country: US (occurrence: US)
  Receive Date: 20230616
  Receipt Date: 20230616
  Transmission Date: 20230721
  Serious: Yes (Hospitalization, Other)
  Sender: FDA-Public Use
  Company Number: US-AMGEN-USACT2022123803

PATIENT
  Age: 9 Year
  Sex: Female
  Weight: 36.8 kg

DRUGS (9)
  1. BLINATUMOMAB [Suspect]
     Active Substance: BLINATUMOMAB
     Indication: B precursor type acute leukaemia
     Dosage: 5.6 MICROGRAM, QD
     Route: 065
     Dates: start: 20220623, end: 20220628
  2. DEXAMETHASONE [Suspect]
     Active Substance: DEXAMETHASONE
     Indication: Cytoreductive surgery
     Dosage: UNK
     Route: 065
     Dates: start: 202010, end: 202206
  3. DEXAMETHASONE [Suspect]
     Active Substance: DEXAMETHASONE
     Dosage: UNK
     Route: 065
     Dates: start: 20220616, end: 20220621
  4. DEXAMETHASONE [Suspect]
     Active Substance: DEXAMETHASONE
     Dosage: UNK, TOTAL DOSE : 6MG
     Route: 065
     Dates: start: 20220621, end: 20220623
  5. LEUCOVORIN CALCIUM [Suspect]
     Active Substance: LEUCOVORIN CALCIUM
     Indication: B precursor type acute leukaemia
     Dosage: UNK
     Route: 065
     Dates: start: 202010, end: 202206
  6. LEUCOVORIN CALCIUM [Suspect]
     Active Substance: LEUCOVORIN CALCIUM
     Dosage: UNK, TOTAL DOSE 11.2 MG
     Route: 065
  7. METHOTREXATE [Suspect]
     Active Substance: METHOTREXATE
     Indication: B precursor type acute leukaemia
     Dosage: UNK
     Route: 065
     Dates: start: 202010, end: 202206
  8. METHOTREXATE [Suspect]
     Active Substance: METHOTREXATE
     Dosage: 15 MILLIGRAM
     Route: 037
     Dates: start: 20220623
  9. NIVOLUMAB [Suspect]
     Active Substance: NIVOLUMAB
     Indication: B precursor type acute leukaemia
     Dosage: UNK
     Route: 065

REACTIONS (7)
  - Hypercalcaemia [Recovering/Resolving]
  - Cytokine release syndrome [Recovering/Resolving]
  - Febrile neutropenia [Recovering/Resolving]
  - Lymphocyte count decreased [Recovering/Resolving]
  - Anaemia [Recovering/Resolving]
  - Platelet count decreased [Recovering/Resolving]
  - Alanine aminotransferase increased [Recovering/Resolving]

NARRATIVE: CASE EVENT DATE: 20220624
